FAERS Safety Report 6836418-7 (Version None)
Quarter: 2010Q3

REPORT INFORMATION
  Report Type: 
  Country: None (occurrence: None)
  Receive Date: 20100713
  Receipt Date: 20100705
  Transmission Date: 20110219
  Serious: Yes (Other)
  Sender: FDA-Public Use
  Company Number: GB-PFIZER INC-2010083775

PATIENT
  Sex: Male
  Weight: 89.4 kg

DRUGS (2)
  1. SUTENT [Suspect]
     Indication: RENAL CELL CARCINOMA
     Dosage: 37.5 MG, 1X/DAY
     Route: 048
     Dates: start: 20091207
  2. ZOLEDRONIC ACID [Suspect]
     Dosage: 4 MG, CYCLIC
     Dates: start: 20090420, end: 20090518

REACTIONS (2)
  - OSTEONECROSIS OF JAW [None]
  - RENAL IMPAIRMENT [None]
